FAERS Safety Report 7379124 (Version 4)
Quarter: 2013Q1

REPORT INFORMATION
  Report Type: Report from Study
  Country: US (occurrence: US)
  Receive Date: 20100506
  Receipt Date: 20130111
  Transmission Date: 20140127
  Serious: Yes (Hospitalization)
  Sender: FDA-Public Use
  Company Number: US-TEVA-232760USA

PATIENT
  Age: 62 Year
  Sex: Female
  Weight: 90 kg

DRUGS (28)
  1. LEUCOVORIN CALCIUM [Suspect]
     Indication: NEOPLASM
     Dosage: ON DAYS 1 AND 15 OF EACH 28 DAY CYCLE
     Route: 042
     Dates: start: 20100308
  2. FLUOROURACIL [Suspect]
     Indication: NEOPLASM
     Dosage: OVER 46-48 HOURS, DAYS 1-3 AND 15-17 OF EACH 28 DAY CYCLE
     Route: 042
     Dates: start: 20100308, end: 20100310
  3. FLUOROURACIL [Suspect]
     Route: 042
     Dates: start: 20100322, end: 20100324
  4. FLUOROURACIL [Suspect]
     Route: 042
     Dates: start: 20100413, end: 20100415
  5. FLUOROURACIL [Suspect]
     Route: 042
     Dates: start: 20100503
  6. ABT-888 [Suspect]
     Indication: NEOPLASM
     Dosage: 20 MILLIGRAM DAILY; CYCKE 2 ON DAYS 1-5 AND 15-19 OF EVERY 28 DAY CYCLE
     Route: 048
  7. IRINOTECAN [Suspect]
     Indication: NEOPLASM
     Dosage: ON DAY 1 AND 5 OF EACH 21 DAY CYCLE
     Route: 042
     Dates: start: 20100308, end: 20100322
  8. IRINOTECAN [Suspect]
     Route: 042
     Dates: start: 20100413, end: 20100413
  9. IRINOTECAN [Suspect]
     Route: 042
     Dates: start: 20100503
  10. DEXAMETHASONE [Concomitant]
     Indication: PROPHYLAXIS
     Dosage: .7143 MILLIGRAM DAILY;
  11. LOPERAMIDE [Concomitant]
     Indication: DIARRHOEA
     Dosage: 1-2 TAB EVERY TWO HOURS PRN
     Dates: start: 20100311
  12. LOPERAMIDE [Concomitant]
     Dosage: 1-2 TAB EVERY TWO HOURS PRN
     Dates: start: 1990
  13. VIGRAN [Concomitant]
     Indication: ROUTINE HEALTH MAINTENANCE
     Route: 048
     Dates: start: 200912
  14. FLUOXETINE HYDROCHLORIDE [Concomitant]
     Indication: DEPRESSION
     Dosage: 20 MILLIGRAM DAILY;
     Dates: start: 1985
  15. OCTREOTIDE ACETATE [Concomitant]
     Indication: GASTROOESOPHAGEAL REFLUX DISEASE
     Dates: start: 200912
  16. PARACETAMOL [Concomitant]
     Indication: ARTHRITIS
     Dosage: 1000 MILLIGRAM DAILY;
     Dates: start: 2005
  17. PARACETAMOL [Concomitant]
     Indication: ABDOMINAL PAIN
  18. ONDANSETRON [Concomitant]
     Indication: NAUSEA
     Dosage: 16 MILLIGRAM DAILY;
     Dates: start: 20100403, end: 20100630
  19. ONDANSETRON [Concomitant]
     Indication: PROPHYLAXIS OF NAUSEA AND VOMITING
     Dosage: 4MG/5ML, PRN
     Dates: start: 20100308, end: 20100630
  20. ONDANSETRON [Concomitant]
     Indication: PROPHYLAXIS OF NAUSEA AND VOMITING
  21. CETIRIZINE HYDROCHLORIDE [Concomitant]
     Indication: SEASONAL ALLERGY
     Dosage: 10 MILLIGRAM DAILY;
     Dates: start: 20100318, end: 20100726
  22. POTASSIUM EFFERVESCENT [Concomitant]
     Indication: HYPOKALAEMIA
     Dosage: 40 MILLIEQUIVALENTS DAILY;
     Dates: start: 20100322, end: 20100322
  23. ATROPINE [Concomitant]
     Indication: PROPHYLAXIS AGAINST DIARRHOEA
     Dosage: .0357 MG/ML DAILY;
     Dates: start: 20100308
  24. PROCHLORPERAZINE EDISYLATE [Concomitant]
     Indication: PROPHYLAXIS OF NAUSEA AND VOMITING
     Dosage: .7143 MILLIGRAM DAILY;
     Dates: start: 20100308
  25. PROCHLORPERAZINE EDISYLATE [Concomitant]
     Indication: PROPHYLAXIS OF NAUSEA AND VOMITING
  26. MAGIC MOUTH WASH [Concomitant]
     Indication: MUCOSAL INFLAMMATION
     Dosage: 5 ML DAILY;
     Route: 048
     Dates: start: 20100329, end: 20100607
  27. CALCIUM CARBONATE [Concomitant]
     Indication: GASTROOESOPHAGEAL REFLUX DISEASE
     Dates: start: 200912, end: 20100901
  28. PANTOPRAZOLE [Concomitant]
     Indication: GASTROOESOPHAGEAL REFLUX DISEASE
     Dosage: 40 MILLIGRAM DAILY;
     Dates: start: 200912, end: 20100328

REACTIONS (1)
  - Small intestinal obstruction [Recovered/Resolved]
